FAERS Safety Report 24190433 (Version 1)
Quarter: 2024Q3

REPORT INFORMATION
  Report Type: Spontaneous
  Country: US (occurrence: US)
  Receive Date: 20240808
  Receipt Date: 20240808
  Transmission Date: 20241017
  Serious: No
  Sender: TARO
  Company Number: US-TARO PHARMACEUTICALS USA INC.-2024TAR00592

PATIENT
  Sex: Female

DRUGS (1)
  1. ADAPALENE [Suspect]
     Active Substance: ADAPALENE
     Indication: Acne
     Dosage: UNK
     Route: 065

REACTIONS (4)
  - Dry skin [Unknown]
  - Skin irritation [Unknown]
  - Application site pain [Unknown]
  - Erythema [Unknown]
